FAERS Safety Report 5531645-3 (Version None)
Quarter: 2007Q4

REPORT INFORMATION
  Report Type: 
  Country: None (occurrence: None)
  Receive Date: 20071203
  Receipt Date: 20071120
  Transmission Date: 20080405
  Serious: Yes (Other)
  Sender: FDA-Public Use
  Company Number: DE-AMGEN-UK253707

PATIENT

DRUGS (5)
  1. NEULASTA [Suspect]
     Indication: CHEMOTHERAPY
     Route: 065
  2. CYCLOPHOSPHAMIDE [Concomitant]
     Route: 065
  3. DOXORUBICIN HCL [Concomitant]
     Route: 065
  4. VINCRISTINE [Concomitant]
     Route: 065
  5. PREDNISONE TAB [Concomitant]
     Route: 065

REACTIONS (1)
  - LEUKOCYTOSIS [None]
